FAERS Safety Report 7400605-X (Version None)
Quarter: 2011Q1

REPORT INFORMATION
  Report Type: 
  Country: None (occurrence: None)
  Receive Date: 20110329
  Receipt Date: 20110318
  Transmission Date: 20110831
  Serious: Yes (Hospitalization)
  Sender: FDA-Public Use
  Company Number: UTC-005633

PATIENT
  Age: 51 Year
  Sex: Female
  Weight: 128.6 kg

DRUGS (19)
  1. ALDACTONE (SPIRONOLACTONE) (50 MILLIGRAM, TABLETS) [Concomitant]
  2. COLACE (DOCUSATE SODIUM) (100 MILLIGRAM, CAPSULES) [Concomitant]
  3. KLOR-CON (POTASSIUM CHLORIDE) (20 MILLEQUIVALENTS, TABLETS) [Concomitant]
  4. REVATIO (SILDENAFIL CITRATE) (20 MILLIGRAM, TABLETS) [Concomitant]
  5. ALLEGRA (FEXOFENADINE) (60 MILLIGRAM, CAPSULES) [Concomitant]
  6. BENADRYL (DIPHENHYDRAMINE) (25 MILLIGRAM, CAPSULES) [Concomitant]
  7. ADVAIR (FLUTICASONE PROPIONATE W/SALMETEROL) [Concomitant]
  8. BACTRIM (SULFONAMIDES AND TRIMETHOPRIM) (TABLETS) [Concomitant]
  9. LANTUS [Concomitant]
  10. SYNTHROID (LEVOTHYROXINE SODIUM) (150 MICROGRAM, TABLETS) [Concomitant]
  11. BUMETANIDE (BUMETANIDE) (1 MILLIGRAM, TABLETS) [Concomitant]
  12. NOVOLOG [Concomitant]
  13. FIBER (TABLETS) [Concomitant]
  14. VITAMIN K (PHYTOMENADIONE) (100 MICROGRAM, TABLETS) [Concomitant]
  15. ALBUTEROL (SALBUTAMOL) (90 MICROGRAM, AEROSOL FOR INHALATION) [Concomitant]
  16. OMEPRAZOLE (OMEPRAZOLE) (20 MILLIGRAM, CAPSULES) [Concomitant]
  17. PREDNISONE (PREDNISONE) (5 MILLIGRAM, TABLETS) [Concomitant]
  18. TYLENOL (PARACETAMOL) (650 MILLIGRAM, TABLETS) [Concomitant]
  19. TYVASO [Suspect]
     Dosage: 120 MCG (30 MCG,4 IN 1 D),INHALATION
     Route: 055
     Dates: start: 20100811

REACTIONS (5)
  - DYSPNOEA [None]
  - COUGH [None]
  - FLUID RETENTION [None]
  - OEDEMA PERIPHERAL [None]
  - OEDEMA [None]
